FAERS Safety Report 4590867-9 (Version None)
Quarter: 2005Q1

REPORT INFORMATION
  Report Type: 
  Country: None (occurrence: None)
  Receive Date: 20050225
  Receipt Date: 20040311
  Transmission Date: 20050727
  Serious: No
  Sender: FDA-Public Use
  Company Number: US-GLAXOSMITHKLINE-A0502382A

PATIENT
  Age: 35 Year
  Sex: Female

DRUGS (3)
  1. ZIAGEN [Suspect]
     Indication: HIV INFECTION
     Dosage: 300MG TWICE PER DAY
     Route: 048
  2. REYATAZ [Concomitant]
  3. NORVIR [Concomitant]

REACTIONS (4)
  - EAR PAIN [None]
  - EYE DISORDER [None]
  - OCULAR HYPERAEMIA [None]
  - OCULAR ICTERUS [None]
